FAERS Safety Report 7694355-2 (Version None)
Quarter: 2011Q3

REPORT INFORMATION
  Report Type: 
  Country: None (occurrence: None)
  Receive Date: 20110819
  Receipt Date: 20110817
  Transmission Date: 20111222
  Serious: Yes (Life-Threatening, Hospitalization)
  Sender: FDA-Public Use
  Company Number: IE-B.I. PHARMACEUTICALS,INC./RIDGEFIELD-2010-UK-01081UK

PATIENT
  Sex: Male
  Weight: 99 kg

DRUGS (5)
  1. TAMOXIFEN CITRATE [Concomitant]
     Indication: BREAST CANCER
     Dosage: 10 MG
     Route: 048
     Dates: start: 20050101
  2. OXYCONTIN [Concomitant]
     Indication: ANALGESIC THERAPY
     Dosage: 10 MG
     Dates: start: 20100724, end: 20100725
  3. PRADAXA [Suspect]
     Indication: PROPHYLAXIS
     Dosage: 150 MG
     Route: 048
     Dates: start: 20100723
  4. LIPITOR [Concomitant]
     Indication: BLOOD CHOLESTEROL INCREASED
     Dosage: 10 MG
     Route: 048
  5. ACETAMINOPHEN [Concomitant]
     Indication: ANALGESIC THERAPY
     Dosage: 1 GM

REACTIONS (2)
  - PULMONARY EMBOLISM [None]
  - LOSS OF CONSCIOUSNESS [None]
